FAERS Safety Report 10468659 (Version 2)
Quarter: 2014Q4

REPORT INFORMATION
  Report Type: Report from Study
  Country: PL (occurrence: PL)
  Receive Date: 20140922
  Receipt Date: 20141006
  Transmission Date: 20150528
  Serious: Yes (Hospitalization)
  Sender: FDA-Public Use
  Company Number: PL-ONYX-2014-2034

PATIENT
  Age: 74 Year
  Sex: Male
  Weight: 69 kg

DRUGS (20)
  1. ACENOCUMAROL [Concomitant]
     Active Substance: ACENOCOUMAROL
     Indication: ATRIAL FIBRILLATION
     Route: 048
     Dates: start: 2006
  2. PREDNISONE. [Suspect]
     Active Substance: PREDNISONE
     Indication: PLASMA CELL MYELOMA
     Route: 048
     Dates: start: 20140707, end: 20140821
  3. CILAZAPRIL [Concomitant]
     Active Substance: CILAZAPRIL ANHYDROUS
     Indication: HYPERTENSION
     Route: 048
     Dates: start: 2009
  4. TRAMADOL [Concomitant]
     Active Substance: TRAMADOL
     Indication: BONE PAIN
     Route: 048
     Dates: start: 20140819
  5. CARFILZOMIB [Suspect]
     Active Substance: CARFILZOMIB
     Route: 042
     Dates: start: 20140714, end: 20140805
  6. CARVEDILOL. [Concomitant]
     Active Substance: CARVEDILOL
     Indication: HYPERTENSION
     Route: 048
     Dates: start: 2010
  7. OMEPRAZOLE. [Concomitant]
     Active Substance: OMEPRAZOLE
     Indication: GASTRITIS PROPHYLAXIS
     Route: 048
     Dates: start: 20140707
  8. CALCIUM CARBONATE. [Concomitant]
     Active Substance: CALCIUM CARBONATE
     Indication: BONE DISORDER
     Route: 048
     Dates: start: 20140804
  9. CARFILZOMIB [Suspect]
     Active Substance: CARFILZOMIB
     Route: 042
     Dates: start: 20140818, end: 20140915
  10. ROSUVASTATINE [Concomitant]
     Active Substance: ROSUVASTATIN
     Indication: HYPERCHOLESTEROLAEMIA
     Route: 048
     Dates: start: 2009
  11. ACYCLOVIR. [Concomitant]
     Active Substance: ACYCLOVIR
     Indication: ANTIVIRAL PROPHYLAXIS
     Route: 048
     Dates: start: 20140707
  12. FILGRASTIM [Concomitant]
     Active Substance: FILGRASTIM
     Indication: PROPHYLAXIS
     Route: 058
     Dates: start: 20140813, end: 20140816
  13. CARFILZOMIB [Suspect]
     Active Substance: CARFILZOMIB
     Indication: PLASMA CELL MYELOMA
     Route: 042
     Dates: start: 20140707, end: 20140708
  14. TORASEMID [Concomitant]
     Active Substance: TORSEMIDE
     Indication: HYPERTENSION
     Route: 048
     Dates: start: 2006, end: 20140916
  15. CIPROFLOXACIN. [Concomitant]
     Active Substance: CIPROFLOXACIN
     Route: 048
     Dates: start: 20140909, end: 20140913
  16. MELPHALAN [Suspect]
     Active Substance: MELPHALAN
     Indication: PLASMA CELL MYELOMA
     Route: 048
     Dates: start: 20140707, end: 20140821
  17. KALIUM [Concomitant]
     Active Substance: POTASSIUM CHLORIDE
     Indication: PROPHYLAXIS
     Route: 048
     Dates: start: 2006, end: 20140917
  18. ZOLEDRONIC ACID [Concomitant]
     Active Substance: ZOLEDRONIC ACID
     Indication: BONE DISORDER
     Route: 042
     Dates: start: 20140729
  19. FILGRASTIM [Concomitant]
     Active Substance: FILGRASTIM
     Indication: NEUTROPENIA
     Route: 058
     Dates: start: 20140910, end: 20140913
  20. CIPROFLOXACIN. [Concomitant]
     Active Substance: CIPROFLOXACIN
     Indication: ANTIBIOTIC PROPHYLAXIS
     Route: 048
     Dates: start: 20140826, end: 20140830

REACTIONS (2)
  - Upper respiratory tract infection [Recovered/Resolved]
  - Renal failure [None]

NARRATIVE: CASE EVENT DATE: 20140916
